FAERS Safety Report 6451009-8 (Version None)
Quarter: 2009Q4

REPORT INFORMATION
  Report Type: 
  Country: None (occurrence: None)
  Receive Date: 20091123
  Receipt Date: 20091118
  Transmission Date: 20100525
  Serious: Yes (Other)
  Sender: FDA-Public Use
  Company Number: B0605654A

PATIENT
  Sex: Female

DRUGS (6)
  1. AUGMENTIN '500' [Suspect]
     Indication: BRONCHITIS
     Dosage: 1000MG TWICE PER DAY
     Route: 048
     Dates: start: 20090210, end: 20090218
  2. IXPRIM [Concomitant]
     Indication: DRUG USE FOR UNKNOWN INDICATION
     Route: 048
     Dates: start: 20090126, end: 20090228
  3. LOXAPAC [Concomitant]
     Indication: DRUG USE FOR UNKNOWN INDICATION
     Route: 048
     Dates: start: 20081201
  4. PLAVIX [Concomitant]
     Indication: DRUG USE FOR UNKNOWN INDICATION
     Dosage: 75MG UNKNOWN
     Route: 048
  5. AMLOR [Concomitant]
     Indication: DRUG USE FOR UNKNOWN INDICATION
     Route: 048
  6. BUFLOMEDIL HYDROCHLORIDE [Concomitant]
     Indication: DRUG USE FOR UNKNOWN INDICATION
     Route: 048

REACTIONS (2)
  - ANAL FUNGAL INFECTION [None]
  - VULVOVAGINAL MYCOTIC INFECTION [None]
